FAERS Safety Report 10541937 (Version 4)
Quarter: 2014Q4

REPORT INFORMATION
  Report Type: Spontaneous
  Country: GB (occurrence: GB)
  Receive Date: 20141024
  Receipt Date: 20141204
  Transmission Date: 20150529
  Serious: Yes (Other)
  Sender: FDA-Public Use
  Company Number: GB-PFIZER INC-2014290065

PATIENT
  Age: 32 Year
  Sex: Female
  Weight: 86 kg

DRUGS (15)
  1. IDARUBICIN HCL [Suspect]
     Active Substance: IDARUBICIN HYDROCHLORIDE
     Indication: ACUTE PROMYELOCYTIC LEUKAEMIA
     Dosage: UNK, CYCLIC (4 COURSES)
     Dates: start: 201309
  2. TRISENOX [Suspect]
     Active Substance: ARSENIC TRIOXIDE
     Dosage: UNK, EXTRA TWICE WEEKLY DOSES BETWEEN THE INDUCTION AND CONSOLIDATION PHASE
  3. TRISENOX [Suspect]
     Active Substance: ARSENIC TRIOXIDE
     Dosage: UNK, CONSOLIDATION CYCLE
  4. ATRA [Suspect]
     Active Substance: TRETINOIN
     Dosage: UNK
     Dates: start: 201309
  5. TRISENOX [Suspect]
     Active Substance: ARSENIC TRIOXIDE
     Indication: ACUTE PROMYELOCYTIC LEUKAEMIA
     Dosage: UNK
  6. TRISENOX [Suspect]
     Active Substance: ARSENIC TRIOXIDE
     Dosage: UNK, CYCLIC
     Dates: start: 201309
  7. MYLOTARG [Suspect]
     Active Substance: GEMTUZUMAB OZOGAMICIN
     Indication: ACUTE PROMYELOCYTIC LEUKAEMIA
     Dosage: 3 MG/M2, UNK
     Dates: start: 201309
  8. MITOXANTRONE [Suspect]
     Active Substance: MITOXANTRONE HYDROCHLORIDE
     Indication: ACUTE PROMYELOCYTIC LEUKAEMIA
     Dosage: UNK, CYCLIC (4 COURSES)
     Dates: start: 201002
  9. ATRA [Suspect]
     Active Substance: TRETINOIN
     Indication: ACUTE PROMYELOCYTIC LEUKAEMIA
     Dosage: UNK, CYCLIC (4 COURSES)
     Dates: start: 201002
  10. ATRA [Suspect]
     Active Substance: TRETINOIN
     Dosage: UNK, CONSOLIDATION CYCLE
  11. THIOTEPA. [Suspect]
     Active Substance: THIOTEPA
     Indication: ACUTE PROMYELOCYTIC LEUKAEMIA
     Dosage: UNK
     Dates: start: 201212
  12. TRISENOX [Suspect]
     Active Substance: ARSENIC TRIOXIDE
     Dosage: CONSOLIDATION THERAPY (DAYS 1-5 FOR 5 WEEKS (25 DOSES) X 2 CYCLES)
     Dates: start: 2012
  13. IDARUBICIN HCL [Suspect]
     Active Substance: IDARUBICIN HYDROCHLORIDE
     Dosage: UNK
     Dates: start: 201309
  14. CYCLOPHOSPHAMIDE. [Suspect]
     Active Substance: CYCLOPHOSPHAMIDE
     Indication: ACUTE PROMYELOCYTIC LEUKAEMIA
     Dosage: UNK
     Dates: start: 201212
  15. BUSULFAN [Suspect]
     Active Substance: BUSULFAN
     Indication: ACUTE PROMYELOCYTIC LEUKAEMIA
     Dosage: UNK
     Dates: start: 201212

REACTIONS (4)
  - Disease recurrence [Unknown]
  - Malaise [Unknown]
  - Acute promyelocytic leukaemia [Unknown]
  - Lower respiratory tract infection fungal [Unknown]

NARRATIVE: CASE EVENT DATE: 201309
